FAERS Safety Report 6349671-3 (Version None)
Quarter: 2009Q3

REPORT INFORMATION
  Report Type: 
  Country: None (occurrence: None)
  Receive Date: 20090911
  Receipt Date: 20090901
  Transmission Date: 20100115
  Serious: Yes (Hospitalization, Other)
  Sender: FDA-Public Use
  Company Number: PHHY2009SI36954

PATIENT
  Age: 43 Year
  Sex: Male

DRUGS (5)
  1. CYCLOSPORINE [Suspect]
     Indication: RENAL TRANSPLANT
     Dosage: 125 MG/DAY
     Dates: start: 20010901
  2. METHYLPREDNISOLONE [Suspect]
     Indication: RENAL TRANSPLANT
     Dosage: 6 MG/DAY
     Dates: start: 20010901
  3. MYCOPHENOLATE MOFETIL [Suspect]
     Indication: RENAL TRANSPLANT
     Dosage: 2250 MG/DAY
  4. ENALAPRIL MALEATE [Concomitant]
  5. CALCITONIN [Concomitant]
     Dosage: 200 U/D
     Dates: start: 20020401

REACTIONS (20)
  - ATRIAL FIBRILLATION [None]
  - CALCINOSIS [None]
  - CALCIPHYLAXIS [None]
  - DEBRIDEMENT [None]
  - HYPERBARIC OXYGEN THERAPY [None]
  - IMPAIRED HEALING [None]
  - INFLAMMATION OF WOUND [None]
  - ISCHAEMIA [None]
  - OSTEOPENIA [None]
  - PAIN IN EXTREMITY [None]
  - POLYCYTHAEMIA [None]
  - SKIN INJURY [None]
  - SKIN LESION [None]
  - SKIN NECROSIS [None]
  - VASCULAR CALCIFICATION [None]
  - VITREOUS HAEMORRHAGE [None]
  - WOUND INFECTION [None]
  - WOUND INFECTION PSEUDOMONAS [None]
  - WOUND INFECTION STAPHYLOCOCCAL [None]
  - WOUND NECROSIS [None]
